FAERS Safety Report 20315003 (Version 1)
Quarter: 2022Q1

REPORT INFORMATION
  Report Type: Spontaneous
  Country: US (occurrence: None)
  Receive Date: 20220110
  Receipt Date: 20220110
  Transmission Date: 20220424
  Serious: No
  Sender: FDA-Public Use
  Company Number: US-ROCHE-2726958

PATIENT
  Age: 47 Year
  Sex: Female
  Weight: 64.105 kg

DRUGS (1)
  1. RITUXAN [Suspect]
     Active Substance: RITUXIMAB
     Indication: B-cell lymphoma
     Dosage: ONGOING: YES
     Route: 065

REACTIONS (1)
  - Throat irritation [Unknown]
